FAERS Safety Report 8372270-9 (Version None)
Quarter: 2012Q2

REPORT INFORMATION
  Report Type: 
  Country: None (occurrence: None)
  Receive Date: 20120521
  Receipt Date: 20120507
  Transmission Date: 20120825
  Serious: Yes (Death, Other)
  Sender: FDA-Public Use
  Company Number: US-RANBAXY-2012US-56332

PATIENT
  Sex: Female
  Weight: 68.27 kg

DRUGS (5)
  1. LAC-HYDRIN TOPICAL CREAM [Suspect]
     Indication: PRODUCT USED FOR UNKNOWN INDICATION
     Route: 065
  2. HYDROCORTISONE [Suspect]
     Indication: PRODUCT USED FOR UNKNOWN INDICATION
     Route: 065
  3. HYDROCORTISONE [Suspect]
     Indication: PRODUCT USED FOR UNKNOWN INDICATION
     Route: 065
  4. GABAPENTIN [Suspect]
     Indication: PRODUCT USED FOR UNKNOWN INDICATION
     Route: 065
  5. LYRICA [Suspect]
     Indication: PAIN
     Dosage: 150 MG, BID
     Route: 048
     Dates: start: 20111101

REACTIONS (5)
  - HYPERKERATOSIS [None]
  - DRY SKIN [None]
  - ERYTHEMA [None]
  - DRUG INEFFECTIVE [None]
  - RASH [None]
